FAERS Safety Report 10188406 (Version 1)
Quarter: 2014Q2

REPORT INFORMATION
  Report Type: Spontaneous
  Country: US (occurrence: None)
  Receive Date: 20140520
  Receipt Date: 20140520
  Transmission Date: 20141212
  Serious: Yes (Other)
  Sender: FDA-Public Use
  Company Number: 2014AP002993

PATIENT
  Age: 71 Year
  Sex: Female

DRUGS (2)
  1. BUPROPION HYDROCHLORIDE [Suspect]
     Indication: SUICIDE ATTEMPT
     Route: 048
  2. LAMOTRIGINE (LAMOTRIGINE) TABLET [Suspect]
     Indication: SUICIDE ATTEMPT
     Route: 048

REACTIONS (6)
  - Status epilepticus [None]
  - Electrocardiogram QT prolonged [None]
  - Intentional overdose [None]
  - Mental status changes [None]
  - Agitation [None]
  - Unresponsive to stimuli [None]
